FAERS Safety Report 7996436-2 (Version None)
Quarter: 2011Q4

REPORT INFORMATION
  Report Type: 
  Country: None (occurrence: None)
  Receive Date: 20111220
  Receipt Date: 20111213
  Transmission Date: 20120403
  Serious: Yes (Hospitalization, Other)
  Sender: FDA-Public Use
  Company Number: US-ASTRAZENECA-2010SE52606

PATIENT
  Age: 67 Year
  Sex: Female

DRUGS (1)
  1. NEXIUM [Suspect]
     Route: 048

REACTIONS (12)
  - DYSPHAGIA [None]
  - OROPHARYNGEAL PAIN [None]
  - PNEUMONIA [None]
  - OESOPHAGITIS [None]
  - FOAMING AT MOUTH [None]
  - DRUG DOSE OMISSION [None]
  - CATARACT [None]
  - AGEUSIA [None]
  - GASTROOESOPHAGEAL REFLUX DISEASE [None]
  - GASTRIC DISORDER [None]
  - PAIN IN EXTREMITY [None]
  - ABDOMINAL PAIN UPPER [None]
